FAERS Safety Report 25715279 (Version 1)
Quarter: 2025Q3

REPORT INFORMATION
  Report Type: Spontaneous
  Country: US (occurrence: US)
  Receive Date: 20250822
  Receipt Date: 20250822
  Transmission Date: 20251020
  Serious: No
  Sender: GLAXOSMITHKLINE
  Company Number: US-GSK-US2025095447

PATIENT
  Age: 85 Year
  Sex: Male

DRUGS (12)
  1. TRELEGY ELLIPTA [Suspect]
     Active Substance: FLUTICASONE FUROATE\UMECLIDINIUM BROMIDE\VILANTEROL TRIFENATATE
     Indication: Chronic obstructive pulmonary disease
  2. ELIQUIS [Concomitant]
     Active Substance: APIXABAN
     Indication: Cardiac flutter
  3. MODAFINIL [Concomitant]
     Active Substance: MODAFINIL
     Indication: Fatigue
     Dosage: 200 MG, QD, TAKE 1/2 TAB EVERY DAY BY MOUTH MORNING
  4. MYRBETRIQ [Concomitant]
     Active Substance: MIRABEGRON
     Indication: Hypertonic bladder
     Dosage: 50 MG, QD, EVERY DAY BY MOUTH MORNING
  5. FAMOTIDINE [Concomitant]
     Active Substance: FAMOTIDINE
     Indication: Gastrooesophageal reflux disease
     Dosage: 20 MG, QD, EVER DAY BY MOUTH MORNING
  6. LISINOPRIL [Concomitant]
     Active Substance: LISINOPRIL
     Indication: Hypertension
     Dosage: 5 MG, BID,  EVERY DAY BY MOUTH MORNING
  7. GABAPENTIN [Concomitant]
     Active Substance: GABAPENTIN
     Indication: Pain
     Dosage: 300 MG, 1 TAB BY MOUTH TWICE A DAY AND 2 TABS AT NIGHT
  8. ATORVASTATIN [Concomitant]
     Active Substance: ATORVASTATIN
     Indication: Blood cholesterol increased
     Dosage: 40 MG, 40MG 1 TAB EVERY DAY BY MOUTH NIGHT
  9. TEMAZEPAM [Concomitant]
     Active Substance: TEMAZEPAM
     Indication: Insomnia
     Dosage: 15 MG, BID, TAKE 2 CAPS ONCE A DAY BY MOUTH AT NIGHT
  10. TOLTERODINE TARTRATE [Concomitant]
     Active Substance: TOLTERODINE TARTRATE
     Indication: Hypertonic bladder
     Dosage: 4 MG, QD, ERM 4MG EVERYDAY BY MOUTH AT NIGHT
  11. FINASTERIDE [Concomitant]
     Active Substance: FINASTERIDE
     Indication: Benign prostatic hyperplasia
     Dosage: 5 MG, QD, 1 TAB EVERY DAY BY MOUTH AT NIGHT
  12. DOXEPIN [Concomitant]
     Active Substance: DOXEPIN
     Indication: Insomnia
     Dosage: 50 MG, QD, 50MG TAKE 1 CAP EVERYDAY BY MOUTH AT NIGHT

REACTIONS (1)
  - Overdose [Unknown]

NARRATIVE: CASE EVENT DATE: 20250724
